FAERS Safety Report 5075024-4 (Version None)
Quarter: 2006Q3

REPORT INFORMATION
  Report Type: 
  Country: None (occurrence: None)
  Receive Date: 20060804
  Receipt Date: 20060725
  Transmission Date: 20061208
  Serious: Yes (Other)
  Sender: FDA-Public Use
  Company Number: 2005108490

PATIENT
  Sex: Female
  Weight: 53.5244 kg

DRUGS (6)
  1. ZOLOFT [Suspect]
     Indication: DEPRESSION
     Dosage: 50 MG (50 MG, 1 IN 1 D), ORAL
     Route: 048
     Dates: start: 19990101
  2. ALLEGRA [Concomitant]
  3. ALBUTEROL [Concomitant]
  4. DENAVIR (PENCICLOVIR) [Concomitant]
  5. INTAL [Concomitant]
  6. EVISTA [Concomitant]

REACTIONS (9)
  - APATHY [None]
  - BRADYPHRENIA [None]
  - ECONOMIC PROBLEM [None]
  - FEELING ABNORMAL [None]
  - HEADACHE [None]
  - HYPOAESTHESIA [None]
  - MEMORY IMPAIRMENT [None]
  - THROMBOSIS [None]
  - WEIGHT INCREASED [None]
